FAERS Safety Report 25983834 (Version 1)
Quarter: 2025Q4

REPORT INFORMATION
  Report Type: Spontaneous
  Country: US (occurrence: None)
  Receive Date: 20251031
  Receipt Date: 20251031
  Transmission Date: 20260118
  Serious: Yes (Hospitalization)
  Sender: FDA-CTU
  Company Number: None

PATIENT
  Age: 72 Year
  Sex: Female
  Weight: 62.8 kg

DRUGS (2)
  1. CARBOPLATIN [Suspect]
     Active Substance: CARBOPLATIN
     Dosage: OTHER FREQUENCY : CYCLE 1 DAY 1;?
     Dates: end: 20120216
  2. TAXOL [Suspect]
     Active Substance: PACLITAXEL
     Dosage: OTHER FREQUENCY : CYCLE 1 DAY 8;?
     Dates: end: 20120223

REACTIONS (3)
  - Diarrhoea [None]
  - Haematochezia [None]
  - Urinary tract infection [None]

NARRATIVE: CASE EVENT DATE: 20120224
